FAERS Safety Report 5440836-1 (Version None)
Quarter: 2007Q3

REPORT INFORMATION
  Report Type: 
  Country: None (occurrence: None)
  Receive Date: 20070831
  Receipt Date: 20070820
  Transmission Date: 20080115
  Serious: Yes (Death, Hospitalization)
  Sender: FDA-Public Use
  Company Number: US-GENENTECH-246388

PATIENT
  Sex: Male
  Weight: 123 kg

DRUGS (9)
  1. BEVACIZUMAB [Suspect]
     Indication: BILE DUCT CANCER
     Dosage: 5 MG/KG, Q2W
     Route: 042
     Dates: start: 20070409
  2. CAPECITABINE [Suspect]
     Indication: BILE DUCT CANCER
     Dosage: 825 MG/M2, BID
     Route: 048
     Dates: start: 20070409
  3. OXALIPLATIN [Suspect]
     Indication: BILE DUCT CANCER
     Dosage: 50 MG/M2, 1/WEEK
     Route: 042
     Dates: start: 20070409
  4. ALLEGRA [Concomitant]
     Indication: DRUG USE FOR UNKNOWN INDICATION
     Dates: start: 20070412
  5. ATIVAN [Concomitant]
     Indication: DRUG USE FOR UNKNOWN INDICATION
     Dates: start: 20070409
  6. WELLBUTRIN [Concomitant]
     Indication: DRUG USE FOR UNKNOWN INDICATION
     Dates: start: 20070507
  7. CHONDROITIN [Concomitant]
     Indication: DRUG USE FOR UNKNOWN INDICATION
  8. MOTRIN [Concomitant]
     Indication: DRUG USE FOR UNKNOWN INDICATION
     Dates: start: 20070613
  9. LOVENOX [Concomitant]
     Indication: DRUG USE FOR UNKNOWN INDICATION
     Dates: start: 20070406

REACTIONS (35)
  - ABSCESS [None]
  - ALPHA HAEMOLYTIC STREPTOCOCCAL INFECTION [None]
  - ARTERIAL DISORDER [None]
  - ASCITES [None]
  - ATELECTASIS [None]
  - ATRIAL FIBRILLATION [None]
  - BLOOD BICARBONATE DECREASED [None]
  - BLOOD CHLORIDE INCREASED [None]
  - BLOOD CULTURE POSITIVE [None]
  - BLOOD SODIUM INCREASED [None]
  - COAGULOPATHY [None]
  - COUGH [None]
  - DISEASE PROGRESSION [None]
  - EFFUSION [None]
  - ENTEROCOCCAL INFECTION [None]
  - HAEMODIALYSIS [None]
  - HEART RATE INCREASED [None]
  - HEPATIC ENCEPHALOPATHY [None]
  - HEPATIC FAILURE [None]
  - HEPATORENAL SYNDROME [None]
  - HYPERNATRAEMIA [None]
  - HYPOPERFUSION [None]
  - HYPOTENSION [None]
  - ISCHAEMIA [None]
  - KLEBSIELLA INFECTION [None]
  - LACTIC ACIDOSIS [None]
  - PANCYTOPENIA [None]
  - PNEUMONIA KLEBSIELLA [None]
  - POST PROCEDURAL COMPLICATION [None]
  - PULMONARY OEDEMA [None]
  - RENAL FAILURE [None]
  - SPLENOMEGALY [None]
  - VEIN DISORDER [None]
  - WOUND DRAINAGE [None]
  - WOUND EVISCERATION [None]
